FAERS Safety Report 12526160 (Version 1)
Quarter: 2016Q3

REPORT INFORMATION
  Report Type: Spontaneous
  Country: US (occurrence: None)
  Receive Date: 20160701
  Receipt Date: 20160701
  Transmission Date: 20161109
  Serious: No
  Sender: FDA-Public Use
  Company Number: None

PATIENT
  Age: 69 Year
  Sex: Male
  Weight: 83.46 kg

DRUGS (15)
  1. C [Concomitant]
  2. VITAMIN B COMPLEX [Concomitant]
     Active Substance: CYANOCOBALAMIN\DEXPANTHENOL\NIACINAMIDE\PYRIDOXINE HYDROCHLORIDE\RIBOFLAVIN 5^-PHOSPHATE SODIUM\THIAMINE HYDROCHLORIDE\VITAMIN B COMPLEX
  3. FOLATE [Concomitant]
     Active Substance: FOLATE SODIUM
  4. OMEGA 3 [Concomitant]
     Active Substance: OMEGA-3 FATTY ACIDS
  5. N-ACETYL-L-CYSTEINE [Concomitant]
  6. ZINC [Concomitant]
     Active Substance: ZINC\ZINC CHLORIDE
  7. PROBIOTIC [Concomitant]
     Active Substance: PROBIOTICS NOS
  8. KYOLIC AGED GARLIC [Concomitant]
  9. VITAMIN B12 [Concomitant]
     Active Substance: CYANOCOBALAMIN
  10. COQ10 [Concomitant]
     Active Substance: UBIDECARENONE
  11. LIGHTNING PEARLS - SU HE TANG JIAWEI [Concomitant]
  12. DRAGON PEARLS - LINGLONG SHAGUI DAN [Concomitant]
  13. TURMERIC [Concomitant]
     Active Substance: TURMERIC
  14. BENZONATATE 200MG, 200 MG [Suspect]
     Active Substance: BENZONATATE
     Indication: BRONCHITIS
     Route: 048
     Dates: start: 20160629, end: 20160629
  15. ALPHA LIPOIC ACID [Concomitant]
     Active Substance: .ALPHA.-LIPOIC ACID

REACTIONS (2)
  - Sleep disorder [None]
  - Dizziness [None]

NARRATIVE: CASE EVENT DATE: 20160629
